FAERS Safety Report 8185639-2 (Version None)
Quarter: 2012Q1

REPORT INFORMATION
  Report Type: 
  Country: None (occurrence: None)
  Receive Date: 20120305
  Receipt Date: 20120227
  Transmission Date: 20120608
  Serious: Yes (Other)
  Sender: FDA-Public Use
  Company Number: PHFR2011GB05417

PATIENT
  Sex: Male

DRUGS (2)
  1. HALOPERIDOL [Suspect]
  2. CLOZARIL [Suspect]
     Indication: SCHIZOPHRENIA
     Dosage: 200 MG, BID
     Route: 048
     Dates: start: 20110825, end: 20110923

REACTIONS (6)
  - CONFUSIONAL STATE [None]
  - SOMNOLENCE [None]
  - ABDOMINAL PAIN LOWER [None]
  - URINARY INCONTINENCE [None]
  - SALIVARY HYPERSECRETION [None]
  - URINARY TRACT INFECTION [None]
